FAERS Safety Report 17930714 (Version 2)
Quarter: 2020Q3

REPORT INFORMATION
  Report Type: Report from Study
  Country: None (occurrence: US)
  Receive Date: 20200623
  Receipt Date: 20200702
  Transmission Date: 20201103
  Serious: Yes (Hospitalization)
  Sender: FDA-Public Use
  Company Number: US-ABBVIE-20K-163-3451446-00

PATIENT
  Age: 62 Year
  Sex: Female

DRUGS (1)
  1. RINVOQ [Suspect]
     Active Substance: UPADACITINIB
     Indication: RHEUMATOID ARTHRITIS
     Route: 048
     Dates: start: 20191120

REACTIONS (5)
  - Device loosening [Unknown]
  - Localised infection [Unknown]
  - Arthralgia [Unknown]
  - Joint swelling [Unknown]
  - Device related infection [Unknown]

NARRATIVE: CASE EVENT DATE: 2020
